FAERS Safety Report 20702353 (Version 2)
Quarter: 2022Q2

REPORT INFORMATION
  Report Type: Spontaneous
  Country: JP (occurrence: JP)
  Receive Date: 20220412
  Receipt Date: 20220419
  Transmission Date: 20220721
  Serious: Yes (Death)
  Sender: FDA-Public Use
  Company Number: JP-shionogi-202203758_SYP_P_1

PATIENT
  Age: 50 Year
  Sex: Male
  Weight: 46 kg

DRUGS (17)
  1. SYMPROIC [Suspect]
     Active Substance: NALDEMEDINE
     Indication: Constipation prophylaxis
     Dosage: 0.2 MG, QD
     Route: 048
     Dates: start: 20210617, end: 20220106
  2. METHADONE HYDROCHLORIDE [Concomitant]
     Active Substance: METHADONE HYDROCHLORIDE
     Indication: Pancreatic carcinoma
     Dosage: 15 MG, 1 PER 12 HOUR
     Route: 048
     Dates: start: 20211018, end: 20220105
  3. METHADONE HYDROCHLORIDE [Concomitant]
     Active Substance: METHADONE HYDROCHLORIDE
     Dosage: 10 MG, QD
     Route: 048
     Dates: start: 20220106, end: 20220106
  4. OXYCODONE [Concomitant]
     Active Substance: OXYCODONE
     Indication: Product used for unknown indication
     Dosage: 36 MG, QD
     Route: 058
     Dates: start: 20220106
  5. PREGABALIN [Concomitant]
     Active Substance: PREGABALIN
     Indication: Pancreatic carcinoma
     Dosage: 75 MG, 1 PER 12 HOUR
     Route: 048
     Dates: start: 20210712, end: 20220106
  6. CALONAL [Concomitant]
     Active Substance: ACETAMINOPHEN
     Indication: Pancreatic carcinoma
     Dosage: 900 MG, PRN6
     Route: 048
     Dates: start: 20210916, end: 20220106
  7. LINZESS [Concomitant]
     Active Substance: LINACLOTIDE
     Indication: Pancreatic carcinoma
     Dosage: 0.5 MG, QD
     Route: 048
     Dates: start: 20211028, end: 20220106
  8. CALCIUM CARBONATE\CHOLECALCIFEROL\MAGNESIUM CARBONATE [Concomitant]
     Active Substance: CALCIUM CARBONATE\CHOLECALCIFEROL\MAGNESIUM CARBONATE
     Indication: Prophylaxis
     Dosage: 1 {DF}, 1 PER 12 HOUR
     Route: 048
     Dates: start: 20211223, end: 20220106
  9. FUROSEMIDE [Concomitant]
     Active Substance: FUROSEMIDE
     Indication: Pancreatic carcinoma
     Dosage: 20 MG, QD
     Route: 048
     Dates: start: 20211216, end: 20220106
  10. NAPROXEN [Concomitant]
     Active Substance: NAPROXEN
     Indication: Pancreatic carcinoma
     Dosage: 200 MG, PRN8
     Route: 048
     Dates: start: 20210520, end: 20220106
  11. NEXIUM [Concomitant]
     Active Substance: ESOMEPRAZOLE MAGNESIUM
     Indication: Prophylaxis against gastrointestinal ulcer
     Dosage: 10 MG, QD
     Route: 048
     Dates: start: 20161125, end: 20220106
  12. BIFIDOBACTERIUM SPP. [Concomitant]
     Active Substance: BIFIDOBACTERIUM SPP.
     Indication: Pancreatic carcinoma
     Dosage: 1 G, PRN8
     Route: 048
     Dates: start: 20161125, end: 20220106
  13. PANCREATIN [Concomitant]
     Active Substance: PANCRELIPASE
     Indication: Pancreatic carcinoma
     Dosage: 1 G, PRN8
     Route: 048
     Dates: start: 20161125, end: 20220106
  14. HERBALS [Concomitant]
     Active Substance: HERBALS
     Indication: Pancreatic carcinoma
     Dosage: 2.5 G, PRN8
     Route: 048
     Dates: start: 20161126, end: 20220106
  15. MAGNESIUM OXIDE [Concomitant]
     Active Substance: MAGNESIUM OXIDE
     Indication: Constipation prophylaxis
     Dosage: 330 MG, PRN8
     Route: 048
     Dates: start: 20161020, end: 20220106
  16. URSODIOL [Concomitant]
     Active Substance: URSODIOL
     Indication: Pancreatic carcinoma
     Dosage: 200 MG, PRN8
     Route: 048
     Dates: start: 20210617, end: 20220106
  17. SPIRONOLACTONE [Concomitant]
     Active Substance: SPIRONOLACTONE
     Indication: Pancreatic carcinoma
     Dosage: 50 MG, QD
     Route: 048
     Dates: start: 20211223, end: 20220106

REACTIONS (3)
  - Cardiac arrest [Fatal]
  - Pancreatic carcinoma [Fatal]
  - Off label use [Unknown]

NARRATIVE: CASE EVENT DATE: 20220106
